FAERS Safety Report 9084166 (Version 1)
Quarter: 2013Q1

REPORT INFORMATION
  Report Type: Report from Study
  Country: US (occurrence: US)
  Receive Date: 20130130
  Receipt Date: 20130130
  Transmission Date: 20140127
  Serious: No
  Sender: FDA-Public Use
  Company Number: US-ABBOTT-12P-163-0970181-00

PATIENT
  Age: 62 Year
  Sex: Female

DRUGS (8)
  1. HUMIRA 40 MG/0.8 ML PEN [Suspect]
     Indication: PSORIASIS
     Dates: start: 20120725
  2. RAMIPRIL [Concomitant]
     Indication: HYPERTENSION
     Dosage: 5MG DAILY
  3. METFORMIN [Concomitant]
     Indication: DIABETES MELLITUS
  4. SYNTHYROID [Concomitant]
     Indication: GOITRE
     Dates: start: 201202
  5. CYTOMEL [Concomitant]
     Indication: THYROID DISORDER
  6. FISH OIL [Concomitant]
     Indication: PRODUCT USED FOR UNKNOWN INDICATION
  7. VITAMIN D [Concomitant]
     Indication: PRODUCT USED FOR UNKNOWN INDICATION
  8. CALCIUM [Concomitant]
     Indication: PRODUCT USED FOR UNKNOWN INDICATION

REACTIONS (1)
  - Injection site pain [Recovered/Resolved]
